FAERS Safety Report 9340280 (Version 2)
Quarter: 2013Q2

REPORT INFORMATION
  Report Type: Spontaneous
  Country: AT (occurrence: None)
  Receive Date: 20130605
  Receipt Date: 20130611
  Transmission Date: 20140414
  Serious: Yes (Hospitalization)
  Sender: FDA-Public Use
  Company Number: ACO_36590_2013

PATIENT
  Sex: Male

DRUGS (3)
  1. FAMPYRA (DALFAMPRIDINE) TABLET, 10MG [Suspect]
     Indication: RELAPSING-REMITTING MULTIPLE SCLEROSIS
     Route: 048
     Dates: start: 20121002, end: 20121016
  2. VIROPEL (VALACICLOVIR HYDROCHLORIDE) [Suspect]
  3. COPAXONE (GLATIRAMER ACETATE) [Suspect]

REACTIONS (4)
  - Muscle spasticity [None]
  - Dysstasia [None]
  - Abasia [None]
  - Vertigo [None]
